FAERS Safety Report 5664911-1 (Version None)
Quarter: 2008Q1

REPORT INFORMATION
  Report Type: 
  Country: None (occurrence: None)
  Receive Date: 20080314
  Receipt Date: 20080303
  Transmission Date: 20080703
  Serious: Yes (Hospitalization)
  Sender: FDA-Public Use
  Company Number: ZA-GILEAD-2008-0015381

PATIENT
  Age: 20 Year
  Sex: Female
  Weight: 48.9 kg

DRUGS (3)
  1. TRUVADA [Suspect]
     Route: 048
     Dates: start: 20071211, end: 20080130
  2. ALUVIA [Suspect]
     Route: 048
     Dates: start: 20071211, end: 20080130
  3. BACTRIM [Concomitant]

REACTIONS (1)
  - ANAEMIA [None]
